FAERS Safety Report 4733405-X (Version None)
Quarter: 2005Q3

REPORT INFORMATION
  Report Type: 
  Country: None (occurrence: None)
  Receive Date: 20050729
  Receipt Date: 20050718
  Transmission Date: 20060218
  Serious: Yes (Hospitalization)
  Sender: FDA-Public Use
  Company Number: WAES 0507CAN00112

PATIENT
  Age: 32 Year
  Sex: Female

DRUGS (3)
  1. INDOCIN [Suspect]
     Indication: PROCEDURAL PAIN
     Dosage: 100 MG/PRN, RECT
     Route: 054
     Dates: start: 20050428, end: 20050428
  2. PLACEBO(UNSPECIFIED) [Suspect]
     Indication: PROPHYLAXIS OF NAUSEA AND VOMITING
     Dosage: IV
     Route: 042
     Dates: start: 20050428
  3. FENTANYL [Suspect]
     Indication: PROCEDURAL PAIN
     Dosage: 25 MG/PRN, IV
     Route: 042
     Dates: start: 20050428, end: 20050428

REACTIONS (2)
  - OXYGEN SATURATION DECREASED [None]
  - RESPIRATORY DEPRESSION [None]
